FAERS Safety Report 4448683-4 (Version None)
Quarter: 2004Q3

REPORT INFORMATION
  Report Type: 
  Country: None (occurrence: None)
  Receive Date: 20040909
  Receipt Date: 20040827
  Transmission Date: 20050211
  Serious: Yes (Other)
  Sender: FDA-Public Use
  Company Number: 2004031647

PATIENT
  Age: 27 Year
  Sex: Female
  Weight: 68 kg

DRUGS (1)
  1. REACTINE ALLERGY AND SINUS (CETIRIZINE, PSEUDOEPHEDRINE) [Suspect]
     Indication: RHINITIS ALLERGIC
     Dosage: (1 IN 1 D) ORAL
     Route: 048
     Dates: start: 20040415, end: 20040422

REACTIONS (3)
  - EXANTHEM [None]
  - RASH MORBILLIFORM [None]
  - RASH PRURITIC [None]
